FAERS Safety Report 11436488 (Version 1)
Quarter: 2015Q3

REPORT INFORMATION
  Report Type: Spontaneous
  Country: US (occurrence: US)
  Receive Date: 20150821
  Receipt Date: 20150821
  Transmission Date: 20151125
  Serious: No
  Sender: FDA-Public Use
  Company Number: US-ELI_LILLY_AND_COMPANY-US201406000875

PATIENT
  Sex: Male

DRUGS (2)
  1. CIALIS [Suspect]
     Active Substance: TADALAFIL
     Indication: ERECTILE DYSFUNCTION
     Dosage: 5 MG, SINGLE
     Route: 048
  2. PENTOXIFILIN [Concomitant]
     Indication: ERECTILE DYSFUNCTION
     Dosage: 400 MG, TID

REACTIONS (3)
  - Tinnitus [Unknown]
  - Hypoacusis [Unknown]
  - Headache [Recovered/Resolved]
